FAERS Safety Report 6151610-5 (Version None)
Quarter: 2009Q2

REPORT INFORMATION
  Report Type: 
  Country: None (occurrence: None)
  Receive Date: 20090410
  Receipt Date: 20090331
  Transmission Date: 20091009
  Serious: Yes (Hospitalization, Other)
  Sender: FDA-Public Use
  Company Number: IE-PFIZER INC-2009164478

PATIENT

DRUGS (2)
  1. SUTENT [Suspect]
     Indication: METASTATIC RENAL CELL CARCINOMA
     Dosage: 50 MG, 1X/DAY
     Route: 048
     Dates: start: 20081201, end: 20081212
  2. NULYTELY [Concomitant]
     Indication: CONSTIPATION
     Dosage: 1 DF, 2X/DAY
     Route: 048

REACTIONS (8)
  - ABDOMINAL PAIN [None]
  - APHASIA [None]
  - CEREBELLAR INFARCTION [None]
  - CEREBRAL INFARCTION [None]
  - DUODENAL ULCER [None]
  - DUODENITIS [None]
  - GASTRITIS [None]
  - THROMBOCYTOPENIA [None]
